FAERS Safety Report 7971254-X (Version None)
Quarter: 2011Q4

REPORT INFORMATION
  Report Type: 
  Country: None (occurrence: None)
  Receive Date: 20111212
  Receipt Date: 20101216
  Transmission Date: 20120403
  Serious: No
  Sender: FDA-Public Use
  Company Number: US-BRISTOL-MYERS SQUIBB COMPANY-15374739

PATIENT

DRUGS (1)
  1. IXABEPILONE [Suspect]

REACTIONS (2)
  - MALAISE [None]
  - LABORATORY TEST ABNORMAL [None]
